FAERS Safety Report 9912414 (Version 3)
Quarter: 2014Q1

REPORT INFORMATION
  Report Type: Report from Study
  Country: US (occurrence: US)
  Receive Date: 20140220
  Receipt Date: 20140311
  Transmission Date: 20141002
  Serious: Yes (Other)
  Sender: FDA-Public Use
  Company Number: US-ROCHE-1330434

PATIENT
  Sex: Female

DRUGS (12)
  1. LUCENTIS [Suspect]
     Indication: AGE-RELATED MACULAR DEGENERATION
     Dosage: RIGHT AND LEFT EYE
     Route: 047
     Dates: start: 20110502
  2. AVASTIN [Suspect]
     Indication: PRODUCT USED FOR UNKNOWN INDICATION
     Route: 047
     Dates: start: 20111028
  3. AMLODIPINE BESYLATE [Concomitant]
     Route: 047
  4. CARVEDILOL [Concomitant]
     Route: 047
  5. FUROSEMIDE [Concomitant]
     Route: 047
  6. HYDRALAZINE HYDROCHLORIDE [Concomitant]
     Route: 065
  7. OFLOXACIN [Concomitant]
     Route: 065
  8. PREDNISOLONE [Concomitant]
     Route: 065
  9. SIMVASTIN [Concomitant]
     Route: 065
  10. PROPARACAINE [Concomitant]
  11. TETRAVISC [Concomitant]
  12. LIDOCAINE [Concomitant]

REACTIONS (7)
  - Diabetic retinal oedema [Unknown]
  - Vision blurred [Unknown]
  - Retinopathy hypertensive [Unknown]
  - Vitreous haemorrhage [Unknown]
  - Aneurysm [Unknown]
  - Optic atrophy [Unknown]
  - Cutis laxa [Unknown]
